FAERS Safety Report 9022229 (Version 1)
Quarter: 2013Q1

REPORT INFORMATION
  Report Type: Spontaneous
  Country: US (occurrence: US)
  Receive Date: 20130118
  Receipt Date: 20130118
  Transmission Date: 20140127
  Serious: No
  Sender: FDA-Public Use
  Company Number: US-PFIZER INC-2012310539

PATIENT
  Age: 56 Year
  Sex: Male

DRUGS (14)
  1. LYRICA [Suspect]
     Dosage: 50 MG, 2X/DAY
     Route: 048
     Dates: start: 20090602, end: 20110207
  2. LYRICA [Suspect]
     Dosage: 75 MG, 3X/DAY
     Route: 048
     Dates: start: 20110207
  3. PROAIR HFA [Concomitant]
     Dosage: 2 PUFFS (108 MCG/ACT) EVERY 4 HOURS AS NEEDED
     Route: 055
  4. ASPIR-81 [Concomitant]
     Dosage: 81 MG TABLET 1 TABLET DAILY
     Route: 048
  5. CELEXA [Concomitant]
     Dosage: 20 MG TABLET 1 TABLET DAILY
     Route: 048
  6. VALIUM [Concomitant]
     Dosage: 5 MG TABLET 1 TABLET 3X/DAY AS NEEDED
     Route: 048
  7. DURAGESIC [Concomitant]
     Indication: PAIN
     Dosage: 50 MCG/HR/PATCH, 1 PATCH ONCE EVERY 72 HOURS
     Route: 061
  8. DURAGESIC [Concomitant]
     Dosage: 50 MCG/HR/PATCH, 1 PATCH ONCE EVERY 60 HOURS
     Route: 061
  9. DURAGESIC [Concomitant]
     Dosage: 50 MCG/HR/PATCH, 1 PATCH ONCE EVERY 48 HOURS
     Route: 061
  10. HYDRODIURIL [Concomitant]
     Dosage: 25 MG TABLET 1 TABLET DAILY
     Route: 048
  11. LISINOPRIL [Concomitant]
     Dosage: 5 MG TABLET 1 TABLET DAILY
     Route: 048
  12. TOPROL XL [Concomitant]
     Dosage: 100 MG TABLET 1 TABLET DAILY
     Route: 048
  13. NITROSTAT [Concomitant]
     Dosage: 0.4 MG SUBLINGUAL TABLET 1 TABLET EVERY 5 MINUTES AS NEEDED, UPTO 3 DOSES IN 15 MINUTES
     Route: 060
  14. ROXYCODONE [Concomitant]
     Dosage: 5 MG TABLET 1 TABLET 3X/DAY AS NEEDED
     Route: 048

REACTIONS (2)
  - Frustration [Unknown]
  - Depression [Unknown]
